FAERS Safety Report 4790462-2 (Version None)
Quarter: 2005Q4

REPORT INFORMATION
  Report Type: 
  Country: None (occurrence: None)
  Receive Date: 20051005
  Receipt Date: 20050919
  Transmission Date: 20060501
  Serious: Yes (Hospitalization)
  Sender: FDA-Public Use
  Company Number: US_0504114949

PATIENT
  Age: 48 Year
  Sex: Male
  Weight: 73 kg

DRUGS (7)
  1. ZYPREXA [Suspect]
     Dosage: 5 MG
     Dates: start: 20000101, end: 20040101
  2. CLOZARIL [Concomitant]
  3. GEODON [Concomitant]
  4. HALDOL [Concomitant]
  5. WELLBUTRIN [Concomitant]
  6. CLONAZEPAM [Concomitant]
  7. DESIPRAMINE HCL [Concomitant]

REACTIONS (16)
  - ASTHENIA [None]
  - BALANCE DISORDER [None]
  - BLOOD CHOLESTEROL ABNORMAL [None]
  - BLOOD TRIGLYCERIDES INCREASED [None]
  - CEREBROVASCULAR ACCIDENT [None]
  - COORDINATION ABNORMAL [None]
  - DIABETES MELLITUS [None]
  - FACIAL PALSY [None]
  - HYPERGLYCAEMIA [None]
  - HYPERPHAGIA [None]
  - HYPERTENSION [None]
  - POLYDIPSIA [None]
  - POLYURIA [None]
  - SPEECH DISORDER [None]
  - VISION BLURRED [None]
  - WEIGHT DECREASED [None]
